FAERS Safety Report 19012875 (Version 1)
Quarter: 2021Q1

REPORT INFORMATION
  Report Type: Spontaneous
  Country: AU (occurrence: AU)
  Receive Date: 20210315
  Receipt Date: 20210315
  Transmission Date: 20210420
  Serious: Yes (Other)
  Sender: FDA-Public Use
  Company Number: AU-AMERICAN REGENT INC-2021000628

PATIENT
  Age: 18 Year
  Sex: Female

DRUGS (1)
  1. FERINJECT [Suspect]
     Active Substance: FERRIC CARBOXYMALTOSE
     Indication: IRON DEFICIENCY
     Dosage: 1000 MILLIGRAM
     Route: 042
     Dates: start: 20200903, end: 20200903

REACTIONS (7)
  - Tachycardia [Recovered/Resolved]
  - Headache [Recovered/Resolved]
  - Pruritus [Recovering/Resolving]
  - Chest pain [Recovering/Resolving]
  - Rash pruritic [Recovered/Resolved]
  - Tongue oedema [Recovered/Resolved]
  - Rash erythematous [Recovering/Resolving]

NARRATIVE: CASE EVENT DATE: 20200903
